FAERS Safety Report 10551945 (Version 1)
Quarter: 2014Q4

REPORT INFORMATION
  Report Type: Spontaneous
  Country: GB (occurrence: GB)
  Receive Date: 20141029
  Receipt Date: 20141029
  Transmission Date: 20150529
  Serious: Yes (Hospitalization, Other)
  Sender: FDA-Public Use
  Company Number: GB-PFIZER INC-2014293194

PATIENT
  Sex: Male

DRUGS (3)
  1. DENOSUMAB [Suspect]
     Active Substance: DENOSUMAB
     Dosage: 120 MG, UNK
     Route: 058
     Dates: end: 20141006
  2. AXITINIB [Suspect]
     Active Substance: AXITINIB
     Indication: RENAL CANCER
     Dosage: 5 MG, 2X/DAY
     Route: 048
     Dates: start: 20140908, end: 20141006
  3. PAZOPANIB [Concomitant]
     Active Substance: PAZOPANIB
     Indication: RENAL CANCER
     Dosage: 600 MG, CYCLIC (14 CYCLES)
     Route: 048
     Dates: start: 20130510, end: 20140826

REACTIONS (2)
  - Vomiting [Unknown]
  - Acute kidney injury [Unknown]

NARRATIVE: CASE EVENT DATE: 20141006
